FAERS Safety Report 9693437 (Version 5)
Quarter: 2014Q1

REPORT INFORMATION
  Report Type: Report from Study
  Country: US (occurrence: US)
  Receive Date: 20131118
  Receipt Date: 20140210
  Transmission Date: 20141002
  Serious: Yes (Hospitalization)
  Sender: FDA-Public Use
  Company Number: US-ACTELION-A-NJ2013-91240

PATIENT
  Age: 75 Year
  Sex: Male

DRUGS (18)
  1. VENTAVIS [Suspect]
     Indication: PULMONARY ARTERIAL HYPERTENSION
     Dosage: 5 MCG, 5X/DAY
     Route: 055
     Dates: start: 20130918
  2. VENTAVIS [Suspect]
     Dosage: UNK
     Route: 055
  3. TRACLEER [Concomitant]
     Indication: PULMONARY ARTERIAL HYPERTENSION
     Dosage: 62.5 MG, BID
  4. LETAIRIS [Concomitant]
  5. REVATIO [Concomitant]
     Dosage: 20 MG, TID
  6. IRON [Concomitant]
  7. ESZOPICLONE [Concomitant]
  8. SIMVASTATIN [Concomitant]
     Dosage: 20 MG, QPM
  9. METOPROLOL [Concomitant]
     Dosage: 25 MG, UNK
  10. ACTOS [Concomitant]
     Dosage: 5 UNK, UNK
  11. PANTOPRAZOLE [Concomitant]
     Dosage: 40 MG, UNK
  12. LASIX [Concomitant]
     Dosage: 20 MG, UNK
  13. MELATONIN [Concomitant]
     Dosage: 3.5 MG, UNK
  14. AMBIEN CR [Concomitant]
     Dosage: 12.5 MG, QPM
  15. TORSEMIDE [Concomitant]
     Dosage: 50 MG, UNK
  16. POTASSIUM [Concomitant]
     Dosage: 1 UNK, UNK
  17. EPOETIN [Concomitant]
  18. METOLAZONE [Concomitant]
     Dosage: 125 MG, UNK

REACTIONS (7)
  - Intestinal obstruction [Not Recovered/Not Resolved]
  - Abdominal pain [Not Recovered/Not Resolved]
  - Generalised oedema [Recovering/Resolving]
  - Diverticulitis [Not Recovered/Not Resolved]
  - Haemorrhage [Unknown]
  - Epistaxis [Not Recovered/Not Resolved]
  - Haematochezia [Not Recovered/Not Resolved]
